FAERS Safety Report 21993691 (Version 1)
Quarter: 2023Q1

REPORT INFORMATION
  Report Type: Spontaneous
  Country: AU (occurrence: AU)
  Receive Date: 20230215
  Receipt Date: 20230215
  Transmission Date: 20230418
  Serious: Yes (Other)
  Sender: FDA-Public Use
  Company Number: AU-AMGEN-AUSSP2023024467

PATIENT
  Age: 40 Year
  Sex: Female

DRUGS (4)
  1. FILGRASTIM [Suspect]
     Active Substance: FILGRASTIM
     Indication: Immunosuppression
     Route: 065
  2. ASPIRIN [Suspect]
     Active Substance: ASPIRIN
     Indication: Product used for unknown indication
     Dosage: 100 MILLIGRAM, QD
     Route: 065
  3. ENOXAPARIN SODIUM [Suspect]
     Active Substance: ENOXAPARIN SODIUM
     Indication: Product used for unknown indication
     Dosage: 40 MILLIGRAM, QD
     Route: 065
  4. TACROLIMUS [Suspect]
     Active Substance: TACROLIMUS
     Indication: Immunosuppression
     Route: 065

REACTIONS (1)
  - Haemorrhage [Recovered/Resolved]

NARRATIVE: CASE EVENT DATE: 20210313
